FAERS Safety Report 12113328 (Version 2)
Quarter: 2016Q1

REPORT INFORMATION
  Report Type: Spontaneous
  Country: GB (occurrence: GB)
  Receive Date: 20160225
  Receipt Date: 20160308
  Transmission Date: 20160526
  Serious: Yes (Hospitalization)
  Sender: FDA-Public Use
  Company Number: GB-JNJFOC-20160215544

PATIENT
  Age: 65 Year
  Sex: Female

DRUGS (4)
  1. CITALOPRAM [Concomitant]
     Active Substance: CITALOPRAM HYDROBROMIDE
     Indication: DEPRESSION
     Dosage: FEW MONTHS AGO
     Route: 065
  2. REGAINE FOAM FOR WOMEN 5% [Suspect]
     Active Substance: MINOXIDIL
     Route: 065
  3. REGAINE FOAM FOR WOMEN 5% [Suspect]
     Active Substance: MINOXIDIL
     Indication: ALOPECIA
     Dosage: STARTED 2.5 WEEKS AGO
     Route: 065
     Dates: start: 2016, end: 20160212
  4. CITALOPRAM [Concomitant]
     Active Substance: CITALOPRAM HYDROBROMIDE
     Indication: HORMONE REPLACEMENT THERAPY
     Dosage: FEW MONTHS AGO
     Route: 065

REACTIONS (4)
  - Vomiting [Not Recovered/Not Resolved]
  - Feeling abnormal [Unknown]
  - Nonspecific reaction [Unknown]
  - Headache [Recovered/Resolved]

NARRATIVE: CASE EVENT DATE: 201602
